FAERS Safety Report 5876873-2 (Version None)
Quarter: 2008Q3

REPORT INFORMATION
  Report Type: 
  Country: None (occurrence: None)
  Receive Date: 20080910
  Receipt Date: 20080717
  Transmission Date: 20090109
  Serious: Yes (Other)
  Sender: FDA-Public Use
  Company Number: US-PURDUE-USA_2008_0034279

PATIENT
  Sex: Male
  Weight: 158 kg

DRUGS (7)
  1. OXYCONTIN [Suspect]
     Indication: PAIN
     Dosage: 20 MG, TID
     Dates: start: 19940101, end: 20020101
  2. LORTAB [Concomitant]
     Indication: BREAKTHROUGH PAIN
     Dosage: 10 MG, TID
  3. XANAX [Concomitant]
     Dosage: 2 MG, TID
  4. PREVACID [Concomitant]
     Dosage: UNK, BID
  5. COUMADIN [Concomitant]
     Dosage: 5 MG, QOD
  6. TEMAZEPAM [Concomitant]
     Dosage: 30 MG, HS
  7. COUMADIN [Concomitant]
     Dosage: 7 MG, QOD

REACTIONS (13)
  - AMNESIA [None]
  - ANGER [None]
  - ASTHENIA [None]
  - DELIRIUM TREMENS [None]
  - DIZZINESS [None]
  - DRUG WITHDRAWAL SYNDROME [None]
  - DRY MOUTH [None]
  - HALLUCINATION, VISUAL [None]
  - HEADACHE [None]
  - INSOMNIA [None]
  - MENTAL IMPAIRMENT [None]
  - NAUSEA [None]
  - NERVOUSNESS [None]
